FAERS Safety Report 10715890 (Version 1)
Quarter: 2015Q1

REPORT INFORMATION
  Report Type: Report from Study
  Country: US (occurrence: None)
  Receive Date: 20150109
  Receipt Date: 20150109
  Transmission Date: 20150721
  Serious: Yes (Death, Hospitalization)
  Sender: FDA-Public Use
  Company Number: 2014PROUSA03655

PATIENT
  Age: 71 Year
  Sex: Male
  Weight: 119.4 kg

DRUGS (10)
  1. ALFUZOSIN (ALFUZOSIN HYDROCHLORIDE) [Concomitant]
  2. PROVENGE [Suspect]
     Active Substance: SIPULEUCEL-T
     Indication: PROSTATE CANCER METASTATIC
     Route: 042
     Dates: start: 20120326, end: 20120326
  3. DILTIAZEM (DILTIAZEM HYDROCHLORIDE) [Concomitant]
  4. LUTEINIZING HORMONE-RELEASING HORMONE (GONADORELIN) [Concomitant]
  5. LOSARTAN (LOSARTAN POTASSIUM) [Concomitant]
  6. ZOMETA [Concomitant]
     Active Substance: ZOLEDRONIC ACID
  7. PREDNISONE (PREDNISONE ACETATE) [Concomitant]
  8. SOTALOL (SOTALOL HYDROCHLORIDE) [Concomitant]
  9. ASPIRIN (ACETYLSALICYLIC ACID) [Concomitant]
     Active Substance: ASPIRIN
  10. ATORVASTATIN (ATORVASTATIN CALCIUM) [Concomitant]

REACTIONS (1)
  - Cerebrovascular accident [None]

NARRATIVE: CASE EVENT DATE: 20140112
